FAERS Safety Report 4695239-4 (Version None)
Quarter: 2005Q2

REPORT INFORMATION
  Report Type: 
  Country: None (occurrence: None)
  Receive Date: 20050614
  Receipt Date: 20050307
  Transmission Date: 20051028
  Serious: Yes (Hospitalization)
  Sender: FDA-Public Use
  Company Number: USA050392593

PATIENT
  Age: 62 Year
  Sex: Male

DRUGS (3)
  1. CIALIS [Suspect]
     Indication: ERECTILE DYSFUNCTION
     Dosage: 20 MG DAY
     Dates: start: 20050225
  2. PLAVIX [Concomitant]
  3. ZOCOR (SIMVASTATIN RATIOPHARM) [Concomitant]

REACTIONS (1)
  - MYOCARDIAL INFARCTION [None]
